FAERS Safety Report 18294548 (Version 1)
Quarter: 2020Q3

REPORT INFORMATION
  Report Type: Spontaneous
  Country: US (occurrence: US)
  Receive Date: 20200922
  Receipt Date: 20200922
  Transmission Date: 20201103
  Serious: Yes (Other)
  Sender: FDA-Public Use
  Company Number: None

PATIENT
  Age: 25 Year
  Sex: Female

DRUGS (2)
  1. PARAGARD T 380A [Suspect]
     Active Substance: COPPER
     Indication: CONTRACEPTION
     Route: 067
     Dates: start: 20190826, end: 20200915
  2. PARAGARD T 380A [Concomitant]
     Active Substance: COPPER
     Dates: start: 20190826, end: 20200915

REACTIONS (3)
  - Pregnancy with contraceptive device [None]
  - Device dislocation [None]
  - Exposure during pregnancy [None]

NARRATIVE: CASE EVENT DATE: 20200915
